FAERS Safety Report 10163977 (Version 1)
Quarter: 2014Q2

REPORT INFORMATION
  Report Type: Spontaneous
  Country: US (occurrence: US)
  Receive Date: 20140510
  Receipt Date: 20140510
  Transmission Date: 20141212
  Serious: No
  Sender: FDA-Public Use
  Company Number: US-BRISTOL-MYERS SQUIBB COMPANY-19732189

PATIENT
  Age: 59 Year
  Sex: Male
  Weight: 96.14 kg

DRUGS (7)
  1. BYETTA PEN DISPOSABLE [Suspect]
     Indication: TYPE 2 DIABETES MELLITUS
     Route: 058
  2. METFORMIN HCL [Suspect]
  3. SIMVASTATIN [Concomitant]
  4. ATENOLOL [Concomitant]
  5. GABAPENTIN [Concomitant]
  6. AMITRIPTYLINE [Concomitant]
  7. GEMFIBROZIL [Concomitant]

REACTIONS (6)
  - Blood glucose increased [Unknown]
  - Pain [Unknown]
  - Hyperhidrosis [Unknown]
  - Neuralgia [Unknown]
  - Injection site pruritus [Unknown]
  - Insomnia [Unknown]
